FAERS Safety Report 9168068 (Version 5)
Quarter: 2014Q3

REPORT INFORMATION
  Report Type: Spontaneous
  Country: US (occurrence: US)
  Receive Date: 20130318
  Receipt Date: 20140725
  Transmission Date: 20150326
  Serious: Yes (Hospitalization, Other)
  Sender: FDA-Public Use
  Company Number: US-009507513-1303USA007586

PATIENT
  Sex: Female
  Weight: 52.61 kg

DRUGS (3)
  1. FOSAMAX [Suspect]
     Active Substance: ALENDRONATE SODIUM
     Dosage: 10 MG, UNK
     Route: 048
     Dates: start: 200004
  2. FOSAMAX [Suspect]
     Active Substance: ALENDRONATE SODIUM
     Indication: OSTEOPOROSIS
     Dosage: 70 MG, UNK
     Route: 048
     Dates: start: 20001226, end: 200209
  3. PREMARIN [Concomitant]
     Active Substance: ESTROGENS, CONJUGATED
     Dosage: UNK
     Dates: start: 1980

REACTIONS (33)
  - Gastrointestinal infection [Unknown]
  - Medical device removal [Unknown]
  - Fibromyalgia [Unknown]
  - Femur fracture [Unknown]
  - Colon operation [Unknown]
  - Bone debridement [Unknown]
  - Depression [Unknown]
  - Laceration [Unknown]
  - Arthritis [Unknown]
  - Cardiac murmur [Unknown]
  - Stress urinary incontinence [Unknown]
  - Anxiety [Unknown]
  - Crohn^s disease [Unknown]
  - Vitamin D deficiency [Unknown]
  - Finger deformity [Unknown]
  - Post procedural infection [Unknown]
  - Calcium deficiency [Unknown]
  - Ocular vascular disorder [Unknown]
  - Gastrooesophageal reflux disease [Unknown]
  - Adverse event [Unknown]
  - Depression [Unknown]
  - Tympanic membrane disorder [Unknown]
  - Intestinal obstruction [Unknown]
  - Fall [Unknown]
  - Hysterosalpingo-oophorectomy [Unknown]
  - Laparotomy [Unknown]
  - Osteoarthritis [Unknown]
  - Anxiety disorder [Unknown]
  - Herpes zoster [Unknown]
  - Adverse event [Unknown]
  - Intramedullary rod insertion [Unknown]
  - Benign uterine neoplasm [Unknown]
  - Blood cholesterol increased [Unknown]

NARRATIVE: CASE EVENT DATE: 200010
